FAERS Safety Report 9378585 (Version 1)
Quarter: 2013Q3

REPORT INFORMATION
  Report Type: Spontaneous
  Country: US (occurrence: US)
  Receive Date: 20130702
  Receipt Date: 20130702
  Transmission Date: 20140515
  Serious: No
  Sender: FDA-Public Use
  Company Number: US-ASTRAZENECA-2013SE49310

PATIENT
  Age: 53 Year
  Sex: Female
  Weight: 131.1 kg

DRUGS (1)
  1. SYMBICORT [Suspect]
     Indication: PNEUMONIA
     Dosage: 160/4.5, TWO PUFFS , BID
     Route: 055
     Dates: start: 201212, end: 2013

REACTIONS (2)
  - Dyspnoea [Unknown]
  - Intentional drug misuse [Unknown]
